FAERS Safety Report 20769121 (Version 1)
Quarter: 2022Q2

REPORT INFORMATION
  Report Type: Spontaneous
  Country: US (occurrence: US)
  Receive Date: 20220429
  Receipt Date: 20220429
  Transmission Date: 20220721
  Serious: Yes (Hospitalization)
  Sender: FDA-Public Use
  Company Number: US-BRISTOL-MYERS SQUIBB COMPANY-2022-013801

PATIENT
  Age: 61 Year
  Sex: Male

DRUGS (1)
  1. POMALYST [Suspect]
     Active Substance: POMALIDOMIDE
     Indication: Product used for unknown indication
     Dosage: TAKE CAPSULE BY MOUTH WHOLE WITH WATER, WITH OR WITHOUT FOOD AT THE SAME TIME DAILY ON DAYS 1- 21 OF
     Route: 048
     Dates: start: 20180801

REACTIONS (1)
  - COVID-19 [Unknown]
